FAERS Safety Report 8613663-1 (Version None)
Quarter: 2012Q3

REPORT INFORMATION
  Report Type: 
  Country: None (occurrence: None)
  Receive Date: 20120823
  Receipt Date: 20120809
  Transmission Date: 20120928
  Serious: Yes (Disabling, Other)
  Sender: FDA-Public Use
  Company Number: US-009507513-1205USA04374

PATIENT

DRUGS (9)
  1. FOSAMAX [Suspect]
     Indication: OSTEOPOROSIS
     Dosage: 10 MG, QD
     Route: 048
     Dates: start: 19980601, end: 20000101
  2. FOSAMAX PLUS D [Suspect]
     Indication: OSTEOPOROSIS PROPHYLAXIS
     Dosage: 70 MG, QW
     Route: 048
     Dates: start: 20070501, end: 20081201
  3. CENTRUM (MINERALS (UNSPECIFIED) (+) VITAMINS (UNSPECIFIED)) [Concomitant]
     Indication: PRODUCT USED FOR UNKNOWN INDICATION
  4. FOSAMAX [Suspect]
     Dosage: 70 MG, QW
     Route: 048
     Dates: start: 20090101, end: 20100501
  5. FOSAMAX PLUS D [Suspect]
     Indication: OSTEOPOROSIS
  6. CALCIUM (UNSPECIFIED) [Concomitant]
     Indication: PRODUCT USED FOR UNKNOWN INDICATION
     Dosage: 600 MG, BID
     Dates: start: 20000101
  7. FOSAMAX [Suspect]
     Dosage: 70 MG, QW
     Route: 048
     Dates: start: 20000101, end: 20070401
  8. HORMONES (UNSPECIFIED) [Concomitant]
     Indication: PRODUCT USED FOR UNKNOWN INDICATION
     Dosage: UNK
     Dates: start: 20040801, end: 20050101
  9. SELECTIVE ESTROGEN RECEPTOR MODULATOR (UNSPECIFIED) [Concomitant]
     Indication: PRODUCT USED FOR UNKNOWN INDICATION
     Dosage: UNK
     Dates: start: 20010301, end: 20010701

REACTIONS (38)
  - GASTROOESOPHAGEAL REFLUX DISEASE [None]
  - VAGINAL DISORDER [None]
  - ABDOMINAL PAIN UPPER [None]
  - ATROPHIC VULVOVAGINITIS [None]
  - ARTHRALGIA [None]
  - HIATUS HERNIA [None]
  - GASTRITIS [None]
  - ACUTE SINUSITIS [None]
  - DIVERTICULUM INTESTINAL [None]
  - BACK PAIN [None]
  - BURSITIS [None]
  - BURN INFECTION [None]
  - BENIGN BREAST NEOPLASM [None]
  - FIBULA FRACTURE [None]
  - VITAMIN D DEFICIENCY [None]
  - COLONIC POLYP [None]
  - CYSTOCELE [None]
  - ENDOMETRIAL DISORDER [None]
  - SINUSITIS [None]
  - BRONCHOSPASM [None]
  - FALL [None]
  - DYSPEPSIA [None]
  - HYPERPROLACTINAEMIA [None]
  - MUSCLE STRAIN [None]
  - MASTITIS [None]
  - OSTEOPENIA [None]
  - LOW TURNOVER OSTEOPATHY [None]
  - HYPERTENSION [None]
  - HAEMORRHOIDS [None]
  - HYPERCHOLESTEROLAEMIA [None]
  - TRIGGER FINGER [None]
  - OSTEOPOROSIS [None]
  - FEMUR FRACTURE [None]
  - ANOGENITAL WARTS [None]
  - HEPATIC STEATOSIS [None]
  - HYPERLIPIDAEMIA [None]
  - POLYP [None]
  - PAIN IN EXTREMITY [None]
